FAERS Safety Report 7467406-8 (Version None)
Quarter: 2011Q2

REPORT INFORMATION
  Report Type: 
  Country: None (occurrence: None)
  Receive Date: 20110509
  Receipt Date: 20101220
  Transmission Date: 20111010
  Serious: No
  Sender: FDA-Public Use
  Company Number: US-ALEXION-A201001647

PATIENT
  Sex: Male

DRUGS (5)
  1. AMBIEN [Concomitant]
     Dosage: 5 MG, QHS
     Route: 048
  2. SOLIRIS [Suspect]
     Dosage: 900 MG, UNK
     Route: 042
     Dates: start: 20091030, end: 20100813
  3. SOLIRIS [Suspect]
     Indication: PAROXYSMAL NOCTURNAL HAEMOGLOBINURIA
     Dosage: 600 MG, UNK
     Route: 042
     Dates: start: 20091002
  4. SYNTHROID [Concomitant]
     Indication: THYROID CANCER
     Dosage: UNK
  5. COMPAZINE [Concomitant]
     Dosage: 10 MG, PRN

REACTIONS (4)
  - TRANSFUSION [None]
  - DRUG INEFFECTIVE [None]
  - ANAEMIA [None]
  - FATIGUE [None]
